FAERS Safety Report 11114995 (Version 1)
Quarter: 2015Q2

REPORT INFORMATION
  Report Type: Spontaneous
  Country: US (occurrence: US)
  Receive Date: 20150515
  Receipt Date: 20150515
  Transmission Date: 20150821
  Serious: No
  Sender: FDA-Public Use
  Company Number: US-BIOGENIDEC-2015BI062361

PATIENT
  Age: 33 Year
  Sex: Male

DRUGS (1)
  1. TECFIDERA [Suspect]
     Active Substance: DIMETHYL FUMARATE
     Indication: MULTIPLE SCLEROSIS
     Route: 048
     Dates: start: 20150302

REACTIONS (4)
  - Hypersensitivity [Unknown]
  - Dyspnoea [Not Recovered/Not Resolved]
  - Paraesthesia [Unknown]
  - Flushing [Unknown]

NARRATIVE: CASE EVENT DATE: 20150302
